FAERS Safety Report 4419399-5 (Version None)
Quarter: 2004Q3

REPORT INFORMATION
  Report Type: 
  Country: None (occurrence: None)
  Receive Date: 20040806
  Receipt Date: 20040806
  Transmission Date: 20050211
  Serious: Yes (Hospitalization)
  Sender: FDA-Public Use
  Company Number: None

PATIENT
  Age: 50 Year
  Sex: Male
  Weight: 74.8435 kg

DRUGS (8)
  1. LITHIUM 300 MG CAPSULE [Suspect]
     Indication: BIPOLAR DISORDER
     Dosage: 300 MG AM/600 MG HS
     Dates: start: 20040430, end: 20040730
  2. ASPIRIN [Concomitant]
  3. CYCLOBENZAPRINE HCL [Concomitant]
  4. NAPROXEN [Concomitant]
  5. OMEPRAZOLE [Concomitant]
  6. PROPRANOLOL [Concomitant]
  7. CITALOPRAM [Concomitant]
  8. TRAZODONE [Concomitant]

REACTIONS (4)
  - ALCOHOL USE [None]
  - ANTIDEPRESSANT DRUG LEVEL INCREASED [None]
  - ATAXIA [None]
  - DIZZINESS [None]
